FAERS Safety Report 11562683 (Version 1)
Quarter: 2015Q3

REPORT INFORMATION
  Report Type: Spontaneous
  Country: US (occurrence: US)
  Receive Date: 20150916
  Receipt Date: 20150916
  Transmission Date: 20151125
  Serious: No
  Sender: FDA-Public Use
  Company Number: US-ELI_LILLY_AND_COMPANY-US200812004193

PATIENT
  Sex: Female

DRUGS (3)
  1. FOSAMAX [Concomitant]
     Active Substance: ALENDRONATE SODIUM
  2. FORTEO [Suspect]
     Active Substance: TERIPARATIDE
     Indication: OSTEOPOROSIS
     Dates: start: 20081202
  3. FISH OIL [Concomitant]
     Active Substance: FISH OIL

REACTIONS (4)
  - Injection site bruising [Not Recovered/Not Resolved]
  - Injection site haemorrhage [Recovered/Resolved]
  - Bone disorder [Not Recovered/Not Resolved]
  - Dysgeusia [Not Recovered/Not Resolved]

NARRATIVE: CASE EVENT DATE: 200812
